FAERS Safety Report 4949666-8 (Version None)
Quarter: 2006Q1

REPORT INFORMATION
  Report Type: 
  Country: None (occurrence: None)
  Receive Date: 20060316
  Receipt Date: 20060308
  Transmission Date: 20060701
  Serious: Yes (Death, Other)
  Sender: FDA-Public Use
  Company Number: USA-2006-0023571

PATIENT
  Age: 32 Year
  Sex: Female

DRUGS (13)
  1. OXYCONTIN [Suspect]
     Indication: BACK PAIN
     Dosage: 80 MG, Q12H
     Dates: start: 20050401
  2. AMBIEN [Concomitant]
  3. SEROQUEL [Concomitant]
  4. BUSPAR [Concomitant]
  5. PROZAC [Concomitant]
  6. ZANAFLEX [Concomitant]
  7. FIORICET (BULTALBITAL) [Concomitant]
  8. DICLOFENAC [Concomitant]
  9. PERCOCET [Concomitant]
  10. IMITREX ^GLAXO-WELLCOME^ (SUMATRIPTAN SUCCINATE) [Concomitant]
  11. SOMA [Concomitant]
  12. TOPAMAX [Concomitant]
  13. PROMETHAZINE [Concomitant]

REACTIONS (1)
  - OVERDOSE [None]
